FAERS Safety Report 4645041-4 (Version None)
Quarter: 2005Q2

REPORT INFORMATION
  Report Type: 
  Country: None (occurrence: None)
  Receive Date: 20050426
  Receipt Date: 20050117
  Transmission Date: 20051028
  Serious: Yes (Death)
  Sender: FDA-Public Use
  Company Number: NZ-ROCHE-401997

PATIENT
  Sex: Female
  Weight: 87.4 kg

DRUGS (4)
  1. CAPECITABINE [Suspect]
     Route: 048
     Dates: start: 20041210, end: 20041226
  2. LOSEC [Concomitant]
  3. ASPIRIN [Concomitant]
     Dosage: DOSEFORM = TABLET
  4. ATENOLOL [Concomitant]

REACTIONS (12)
  - ANOREXIA [None]
  - BLOOD PRESSURE INCREASED [None]
  - DEHYDRATION [None]
  - DIARRHOEA [None]
  - DIVERTICULAR PERFORATION [None]
  - DIZZINESS [None]
  - HEART RATE INCREASED [None]
  - HYPOALBUMINAEMIA [None]
  - HYPOKALAEMIA [None]
  - MUCOSAL INFLAMMATION [None]
  - OEDEMA [None]
  - PANCYTOPENIA [None]
